FAERS Safety Report 25870181 (Version 1)
Quarter: 2025Q4

REPORT INFORMATION
  Report Type: Spontaneous
  Country: CA (occurrence: CA)
  Receive Date: 20251001
  Receipt Date: 20251001
  Transmission Date: 20260117
  Serious: Yes (Other)
  Sender: BRACCO
  Company Number: CA-BRACCO-2025CA06651

PATIENT
  Age: 74 Year
  Sex: Male

DRUGS (1)
  1. MULTIHANCE [Suspect]
     Active Substance: GADOBENATE DIMEGLUMINE
     Indication: Magnetic resonance imaging
     Dosage: 529 MILLIGRAM/MILLILITER
     Route: 040

REACTIONS (3)
  - Nodule [Unknown]
  - Pruritus [Unknown]
  - Urticaria [Unknown]
